FAERS Safety Report 9735868 (Version 2)
Quarter: 2015Q3

REPORT INFORMATION
  Report Type: Spontaneous
  Country: US (occurrence: US)
  Receive Date: 20131206
  Receipt Date: 20150804
  Transmission Date: 20151125
  Serious: No
  Sender: FDA-Public Use
  Company Number: US-GILEAD-2009-0024270

PATIENT
  Age: 62 Year
  Sex: Female
  Weight: 62.6 kg

DRUGS (12)
  1. NEOMYCIN [Concomitant]
     Active Substance: NEOMYCIN
  2. GLIPIZIDE ER [Concomitant]
     Active Substance: GLIPIZIDE
  3. CALCIUM [Concomitant]
     Active Substance: CALCIUM
  4. SPIRONOLACTONE. [Concomitant]
     Active Substance: SPIRONOLACTONE
  5. IMODIUM AD [Concomitant]
     Active Substance: LOPERAMIDE HYDROCHLORIDE
  6. REVATIO [Concomitant]
     Active Substance: SILDENAFIL CITRATE
     Indication: PULMONARY ARTERIAL HYPERTENSION
  7. ALBUTEROL INHALER [Concomitant]
     Active Substance: ALBUTEROL
  8. LASIX [Concomitant]
     Active Substance: FUROSEMIDE
  9. VITAMIN D [Concomitant]
     Active Substance: CHOLECALCIFEROL
  10. URSODIOL. [Concomitant]
     Active Substance: URSODIOL
  11. BL VITAMIN A [Concomitant]
  12. LETAIRIS [Suspect]
     Active Substance: AMBRISENTAN
     Indication: PULMONARY ARTERIAL HYPERTENSION
     Route: 048
     Dates: start: 20090326

REACTIONS (1)
  - Peripheral swelling [Unknown]
